FAERS Safety Report 12181515 (Version 1)
Quarter: 2016Q1

REPORT INFORMATION
  Report Type: Report from Study
  Country: ES (occurrence: ES)
  Receive Date: 20160315
  Receipt Date: 20160315
  Transmission Date: 20160526
  Serious: Yes (Life-Threatening, Hospitalization, Other)
  Sender: FDA-Public Use
  Company Number: ES-BRISTOL-MYERS SQUIBB COMPANY-BMS-2016-019104

PATIENT
  Age: 61 Year
  Sex: Male

DRUGS (2)
  1. DUROGESIC [Concomitant]
     Active Substance: FENTANYL
     Indication: PRODUCT USED FOR UNKNOWN INDICATION
     Dosage: 1 DF, UNK
     Route: 065
  2. NIVOLUMAB [Suspect]
     Active Substance: NIVOLUMAB
     Indication: NON-SMALL CELL LUNG CANCER
     Dosage: 144 MG, UNK
     Route: 042
     Dates: start: 20150908, end: 20150908

REACTIONS (1)
  - Hypersensitivity vasculitis [Recovered/Resolved with Sequelae]

NARRATIVE: CASE EVENT DATE: 20150918
